FAERS Safety Report 5712516-6 (Version None)
Quarter: 2008Q2

REPORT INFORMATION
  Report Type: 
  Country: None (occurrence: None)
  Receive Date: 20080422
  Receipt Date: 20080422
  Transmission Date: 20081010
  Serious: Yes (Death)
  Sender: FDA-Public Use
  Company Number: None

PATIENT
  Age: 80 Year
  Sex: Male
  Weight: 86.1834 kg

DRUGS (1)
  1. HEPARIN [Suspect]
     Indication: THROMBOSIS
     Dates: start: 20080110, end: 20080114

REACTIONS (6)
  - ASPIRATION [None]
  - HYPERHIDROSIS [None]
  - PULMONARY THROMBOSIS [None]
  - THERAPEUTIC PRODUCT CONTAMINATION [None]
  - THROMBOSIS [None]
  - VOMITING [None]
